FAERS Safety Report 4483932-8 (Version None)
Quarter: 2004Q4

REPORT INFORMATION
  Report Type: 
  Country: None (occurrence: None)
  Receive Date: 20041022
  Receipt Date: 20041022
  Transmission Date: 20050328
  Serious: Yes (Hospitalization)
  Sender: FDA-Public Use
  Company Number: None

PATIENT
  Sex: Female

DRUGS (3)
  1. IRINOTECAN HCL [Suspect]
     Indication: RECTAL CANCER
     Dosage: 180/400 MG/M2 90 MIN 2 HRS IV
     Route: 042
     Dates: start: 20041011, end: 20041011
  2. FLUOROURACIL [Suspect]
     Indication: RECTAL CANCER
     Dosage: 2.4 GM/M2 48 HR IV
     Route: 042
     Dates: start: 20041011, end: 20041021
  3. LEUCOVORIN [Suspect]

REACTIONS (2)
  - ABDOMINAL PAIN [None]
  - DIARRHOEA [None]
